FAERS Safety Report 9494456 (Version 1)
Quarter: 2013Q3

REPORT INFORMATION
  Report Type: Spontaneous
  Country: US (occurrence: None)
  Receive Date: 20130830
  Receipt Date: 20130830
  Transmission Date: 20140515
  Serious: Yes (Hospitalization, Other)
  Sender: FDA-Public Use
  Company Number: None

PATIENT
  Age: 21 Year
  Sex: Female
  Weight: 88.91 kg

DRUGS (4)
  1. SAFYRAL [Suspect]
     Indication: CONTRACEPTION
     Dosage: STRENGTH: 3 MG 10.03MG/0.451MG AND 0.451MG ?QUANTITY:  1 PILL PER DAY 30 PER PACK?FREQUENCY: 1 PER DAY ?HOW:  BY MOUTH?
     Route: 048
     Dates: start: 20101020, end: 20130819
  2. SAFYRAL [Concomitant]
  3. NAPROXEN [Concomitant]
  4. ENSURE SHAKES FOR VITAMINS [Concomitant]

REACTIONS (1)
  - Pain [None]
